FAERS Safety Report 16836773 (Version 5)
Quarter: 2020Q4

REPORT INFORMATION
  Report Type: Spontaneous
  Country: US (occurrence: US)
  Receive Date: 20190922
  Receipt Date: 20201106
  Transmission Date: 20210113
  Serious: Yes (Life-Threatening, Other)
  Sender: FDA-Public Use
  Company Number: US-SHIRE-US201930955

PATIENT
  Sex: Female

DRUGS (14)
  1. NATPARA (PARATHYROID HORMONE) [Suspect]
     Active Substance: PARATHYROID HORMONE
     Indication: RENAL DISORDER
     Dosage: 75 MICROGRAM, 1X/DAY:QD
     Route: 058
  2. NATPARA (PARATHYROID HORMONE) [Suspect]
     Active Substance: PARATHYROID HORMONE
     Indication: RENAL DISORDER
     Dosage: 75 MICROGRAM, 1X/DAY:QD
     Route: 058
  3. VITAMIN D2 [Concomitant]
     Active Substance: ERGOCALCIFEROL
     Dosage: 50000 INTERNATIONAL UNIT, 1/WEEK
     Route: 065
  4. VIT D [Concomitant]
     Active Substance: VITAMIN D NOS
     Indication: PRODUCT USED FOR UNKNOWN INDICATION
     Dosage: 1 DOSAGE FORM, 1/WEEK
     Route: 048
  5. CALCIUM CITRATE + D3 [Concomitant]
     Dosage: 30 MILLILITER, BID
     Route: 048
  6. NATPARA (PARATHYROID HORMONE) [Suspect]
     Active Substance: PARATHYROID HORMONE
     Indication: HYPOPARATHYROIDISM
  7. CALCITRIOL. [Concomitant]
     Active Substance: CALCITRIOL
     Indication: PRODUCT USED FOR UNKNOWN INDICATION
     Dosage: 0.5 MICROGRAM, BID
     Route: 048
  8. ROCALTROL [Concomitant]
     Active Substance: CALCITRIOL
     Dosage: 1 MICROGRAM, QD
     Route: 065
  9. LEVOTHYROXINE SODIUM. [Concomitant]
     Active Substance: LEVOTHYROXINE SODIUM
     Dosage: 175 MICROGRAM, QD
     Route: 048
  10. NATPARA (PARATHYROID HORMONE) [Suspect]
     Active Substance: PARATHYROID HORMONE
     Indication: HYPOPARATHYROIDISM
  11. INSULIN [Concomitant]
     Active Substance: INSULIN NOS
     Dosage: 1 DOSAGE FORM, QD
     Route: 065
  12. NATPARA (PARATHYROID HORMONE) [Suspect]
     Active Substance: PARATHYROID HORMONE
     Indication: RENAL DISORDER
     Dosage: 75 MICROGRAM, 1X/DAY:QD
     Route: 058
  13. NATPARA (PARATHYROID HORMONE) [Suspect]
     Active Substance: PARATHYROID HORMONE
     Indication: HYPOPARATHYROIDISM
  14. VITAMIN D3 [Concomitant]
     Active Substance: CHOLECALCIFEROL
     Dosage: 1500 INTERNATIONAL UNIT, QD
     Route: 065

REACTIONS (5)
  - Hypercalcaemia [Unknown]
  - Tetany [Unknown]
  - Renal failure [Unknown]
  - Recalled product [Unknown]
  - Therapeutic response unexpected [Unknown]
